FAERS Safety Report 9681246 (Version 2)
Quarter: 2014Q1

REPORT INFORMATION
  Report Type: Spontaneous
  Country: US (occurrence: US)
  Receive Date: 20131111
  Receipt Date: 20140107
  Transmission Date: 20141002
  Serious: No
  Sender: FDA-Public Use
  Company Number: US-009507513-1311USA001216

PATIENT
  Age: 23 Year
  Sex: Female
  Weight: 70.3 kg

DRUGS (8)
  1. NEXPLANON [Suspect]
     Indication: CONTRACEPTION
     Dosage: UNK
     Route: 059
     Dates: start: 20130517, end: 20131103
  2. NEXPLANON [Suspect]
     Dosage: UNK
     Dates: start: 20131103
  3. SPIRONOLACTONE [Concomitant]
     Dosage: UNK
  4. ZYRTEC [Concomitant]
     Dosage: UNK
  5. ACYCLOVIR [Concomitant]
     Dosage: UNK
  6. OMEGA-3 MARINE TRIGLYCERIDES [Concomitant]
     Dosage: UNK
  7. CYANOCOBALAMIN [Concomitant]
     Dosage: UNK
  8. ALEVE [Concomitant]
     Dosage: UNK

REACTIONS (2)
  - Anxiety [Unknown]
  - Device breakage [Recovered/Resolved]
